FAERS Safety Report 6174785-0 (Version None)
Quarter: 2009Q2

REPORT INFORMATION
  Report Type: 
  Country: None (occurrence: None)
  Receive Date: 20090430
  Receipt Date: 20080924
  Transmission Date: 20091009
  Serious: No
  Sender: FDA-Public Use
  Company Number: US-ASTRAZENECA-2008UW20097

PATIENT
  Age: 63 Year
  Sex: Female
  Weight: 78.5 kg

DRUGS (6)
  1. NEXIUM [Suspect]
     Indication: GASTROOESOPHAGEAL REFLUX DISEASE
     Route: 048
     Dates: start: 20080922
  2. LEVOTHYROXINE SODIUM [Concomitant]
  3. CILOSTAZOL [Concomitant]
  4. ASPIRIN [Concomitant]
  5. METOPROLOL TARTRATE [Concomitant]
  6. LIPITOR [Concomitant]

REACTIONS (1)
  - CONDITION AGGRAVATED [None]
